FAERS Safety Report 17338384 (Version 1)
Quarter: 2020Q1

REPORT INFORMATION
  Report Type: Spontaneous
  Country: JP (occurrence: JP)
  Receive Date: 20200129
  Receipt Date: 20200129
  Transmission Date: 20200409
  Serious: Yes (Other)
  Sender: FDA-Public Use
  Company Number: NVSC2020JP020790

PATIENT
  Age: 75 Year
  Sex: Male

DRUGS (8)
  1. GEMCITABINE. [Suspect]
     Active Substance: GEMCITABINE
     Indication: MALIGNANT PLEURAL EFFUSION
  2. NIVOLUMAB [Suspect]
     Active Substance: NIVOLUMAB
     Indication: SQUAMOUS CELL CARCINOMA
     Dosage: UNK
     Route: 065
  3. CARBOPLATIN. [Suspect]
     Active Substance: CARBOPLATIN
     Indication: MALIGNANT PLEURAL EFFUSION
     Dosage: UNK
     Route: 065
  4. GEMCITABINE. [Suspect]
     Active Substance: GEMCITABINE
     Indication: SQUAMOUS CELL CARCINOMA
     Dosage: UNK
     Route: 065
  5. NIVOLUMAB [Suspect]
     Active Substance: NIVOLUMAB
     Indication: MALIGNANT PLEURAL EFFUSION
  6. CARBOPLATIN. [Suspect]
     Active Substance: CARBOPLATIN
     Indication: SQUAMOUS CELL CARCINOMA
  7. PACLITAXEL. [Suspect]
     Active Substance: PACLITAXEL
     Indication: SQUAMOUS CELL CARCINOMA
     Dosage: UNK
     Route: 065
  8. PACLITAXEL. [Suspect]
     Active Substance: PACLITAXEL
     Indication: MALIGNANT PLEURAL EFFUSION

REACTIONS (4)
  - Metastases to lymph nodes [Unknown]
  - Squamous cell carcinoma [Unknown]
  - Malignant pleural effusion [Unknown]
  - Malignant neoplasm progression [Unknown]
